FAERS Safety Report 7161784-5 (Version None)
Quarter: 2010Q4

REPORT INFORMATION
  Report Type: 
  Country: None (occurrence: None)
  Receive Date: 20101201
  Receipt Date: 20101116
  Transmission Date: 20110411
  Serious: Yes (Congenital Anomaly, Other)
  Sender: FDA-Public Use
  Company Number: GER/UKI/10/0016643

PATIENT

DRUGS (5)
  1. FLUOXETINE [Suspect]
     Indication: DEPRESSION
     Dosage: 20 MG, 1 IN 1 D, TRANSPLACENTAL
     Route: 064
     Dates: start: 20090817, end: 20091216
  2. METHADONE HCL [Suspect]
     Indication: DRUG DEPENDENCE
     Dosage: 130 MG, 1 IN 1 D, TRANSPLACENTAL, 100 MG, TRANSPLACENTAL
     Route: 064
     Dates: start: 20081101, end: 20100525
  3. METHADONE HCL [Suspect]
     Indication: DRUG DEPENDENCE
     Dosage: 130 MG, 1 IN 1 D, TRANSPLACENTAL, 100 MG, TRANSPLACENTAL
     Route: 064
     Dates: start: 20100525
  4. TRAZODONE HCL [Suspect]
     Indication: DEPRESSION
     Dosage: 50 MG, 1 IN 1 D, TRANSPLACENTAL
     Route: 064
     Dates: start: 20090817, end: 20091216
  5. CERAZETTE (CEFALORIDINE) [Concomitant]

REACTIONS (5)
  - CHOROIDAL COLOBOMA [None]
  - COLOBOMA [None]
  - IRIS COLOBOMA [None]
  - MATERNAL DRUGS AFFECTING FOETUS [None]
  - OPTIC NERVE DISORDER [None]
